FAERS Safety Report 4807394-3 (Version None)
Quarter: 2005Q4

REPORT INFORMATION
  Report Type: 
  Country: None (occurrence: None)
  Receive Date: 20051024
  Receipt Date: 20051012
  Transmission Date: 20060501
  Serious: Yes (Other)
  Sender: FDA-Public Use
  Company Number: FR-BRISTOL-MYERS SQUIBB COMPANY-13141718

PATIENT
  Age: 64 Year
  Sex: Female

DRUGS (5)
  1. TAXOL [Suspect]
     Indication: BREAST CANCER
     Route: 042
     Dates: start: 19990922, end: 20000112
  2. ADRIAMYCIN PFS [Suspect]
     Indication: BREAST CANCER
     Route: 042
     Dates: start: 19990922, end: 20000112
  3. PRIMPERAN INJ [Concomitant]
     Dates: start: 19990101
  4. NOCERTONE [Concomitant]
     Dates: start: 19990101
  5. VIBTIL [Concomitant]
     Dates: start: 19990101

REACTIONS (2)
  - ACUTE MYELOID LEUKAEMIA [None]
  - TREATMENT RELATED SECONDARY MALIGNANCY [None]
